FAERS Safety Report 21670752 (Version 1)
Quarter: 2022Q4

REPORT INFORMATION
  Report Type: Report from Study
  Country: US (occurrence: US)
  Receive Date: 20221202
  Receipt Date: 20221202
  Transmission Date: 20230113
  Serious: No
  Sender: FDA-Public Use
  Company Number: US-ABBVIE-4214422

PATIENT
  Sex: Male

DRUGS (1)
  1. HUMIRA [Suspect]
     Active Substance: ADALIMUMAB
     Indication: Ankylosing spondylitis
     Route: 058

REACTIONS (7)
  - Penile erythema [Unknown]
  - Weight decreased [Unknown]
  - Penile pain [Unknown]
  - Balanoposthitis [Unknown]
  - Catheter site inflammation [Unknown]
  - Device related infection [Unknown]
  - Catheter site erythema [Unknown]
